FAERS Safety Report 11170366 (Version 1)
Quarter: 2015Q2

REPORT INFORMATION
  Report Type: Spontaneous
  Country: CN (occurrence: CN)
  Receive Date: 20150608
  Receipt Date: 20150608
  Transmission Date: 20150821
  Serious: Yes (Other)
  Sender: FDA-Public Use
  Company Number: CN-BAYER-2015-279426

PATIENT
  Age: 73 Year
  Sex: Female

DRUGS (4)
  1. AVELOX [Suspect]
     Active Substance: MOXIFLOXACIN HYDROCHLORIDE
     Indication: ANTIBIOTIC THERAPY
     Dosage: UNK
     Dates: start: 20150421
  2. FLUVASTATIN SODIUM. [Concomitant]
     Active Substance: FLUVASTATIN SODIUM
     Dosage: UNK
  3. AMBROXOL HYDROCHLORIDE [Concomitant]
     Active Substance: AMBROXOL HYDROCHLORIDE
     Dosage: UNK
  4. CEFOTIAM [Concomitant]
     Active Substance: CEFOTIAM
     Indication: ANTIBIOTIC THERAPY
     Dosage: UNK
     Dates: start: 20150419

REACTIONS (2)
  - Carcinoembryonic antigen increased [None]
  - Shock [Recovered/Resolved]

NARRATIVE: CASE EVENT DATE: 20150421
